FAERS Safety Report 25408444 (Version 1)
Quarter: 2025Q2

REPORT INFORMATION
  Report Type: Report from Study
  Country: US (occurrence: US)
  Receive Date: 20250606
  Receipt Date: 20250606
  Transmission Date: 20250716
  Serious: Yes (Other)
  Sender: ABBVIE
  Company Number: US-ABBVIE-6311492

PATIENT
  Age: 55 Year
  Sex: Male

DRUGS (1)
  1. VYALEV [Suspect]
     Active Substance: FOSCARBIDOPA\FOSLEVODOPA
     Indication: Product used for unknown indication
     Route: 058
     Dates: start: 20250317

REACTIONS (4)
  - Unresponsive to stimuli [Unknown]
  - Off label use [Unknown]
  - Mobility decreased [Unknown]
  - Mental status changes [Unknown]

NARRATIVE: CASE EVENT DATE: 20250101
